FAERS Safety Report 9830419 (Version 1)
Quarter: 2014Q1

REPORT INFORMATION
  Report Type: Spontaneous
  Country: US (occurrence: US)
  Receive Date: 20140120
  Receipt Date: 20140120
  Transmission Date: 20141002
  Serious: Yes (Hospitalization)
  Sender: FDA-Public Use
  Company Number: US-BAYER-2014-009683

PATIENT
  Age: 48 Year
  Sex: Female
  Weight: 68.03 kg

DRUGS (9)
  1. YASMIN [Suspect]
  2. FEXOFENADINE [Concomitant]
     Dosage: 180 MG, UNK
  3. IBUPROFEN [Concomitant]
     Dosage: 800 MG, UNK
  4. IPRATROPIUM BROMIDE [Concomitant]
  5. ALLEGRA-D [Concomitant]
     Dosage: 60-120 MG
  6. HISTA-VENT DA [Concomitant]
  7. ASTELIN [Concomitant]
     Dosage: 137 MCG
  8. ACYCLOVIR [ACICLOVIR] [Concomitant]
     Dosage: 400 MG, UNK
  9. PREVIDENT [Concomitant]

REACTIONS (1)
  - Pulmonary embolism [None]
